FAERS Safety Report 11445603 (Version 11)
Quarter: 2018Q3

REPORT INFORMATION
  Report Type: Report from Study
  Country: GB (occurrence: GB)
  Receive Date: 20150902
  Receipt Date: 20180905
  Transmission Date: 20181010
  Serious: Yes (Hospitalization)
  Sender: FDA-Public Use
  Company Number: GB-ROCHE-1627636

PATIENT
  Age: 56 Year
  Sex: Female

DRUGS (13)
  1. TRASTUZUMAB EMTANSINE [Suspect]
     Active Substance: ADO-TRASTUZUMAB EMTANSINE
     Indication: HER-2 POSITIVE BREAST CANCER
     Route: 042
     Dates: start: 20150508, end: 20150924
  2. CALCICHEW [Concomitant]
     Active Substance: CALCIUM CARBONATE
     Indication: BLOOD CALCIUM DECREASED
     Route: 048
     Dates: start: 20151020
  3. PARACETAMOL [Concomitant]
     Active Substance: ACETAMINOPHEN
     Indication: BONE PAIN
     Route: 048
     Dates: start: 201504, end: 201507
  4. ERIBULIN [Suspect]
     Active Substance: ERIBULIN
     Indication: HER-2 POSITIVE BREAST CANCER
     Route: 042
     Dates: start: 20160602
  5. TRASTUZUMAB. [Suspect]
     Active Substance: TRASTUZUMAB
     Route: 058
     Dates: start: 20160324
  6. THYROXINE [Concomitant]
     Active Substance: LEVOTHYROXINE
     Route: 048
     Dates: start: 1995
  7. DENOSUMAB [Concomitant]
     Active Substance: DENOSUMAB
     Route: 058
     Dates: start: 20151019
  8. AMITRIPTYLINE [Concomitant]
     Active Substance: AMITRIPTYLINE
     Route: 048
     Dates: start: 201504, end: 201504
  9. TRASTUZUMAB. [Suspect]
     Active Substance: TRASTUZUMAB
     Indication: HER-2 POSITIVE BREAST CANCER
     Route: 058
     Dates: start: 20151113, end: 20160225
  10. COCODAMOL [Concomitant]
     Active Substance: ACETAMINOPHEN\CODEINE PHOSPHATE
     Route: 048
     Dates: start: 201504
  11. ZOLEDRONIC ACID [Concomitant]
     Active Substance: ZOLEDRONIC ACID
     Indication: VITAMIN D DECREASED
     Route: 042
     Dates: start: 20150508, end: 20150911
  12. IBUPROFEN. [Concomitant]
     Active Substance: IBUPROFEN
     Route: 048
     Dates: start: 201504, end: 20151113
  13. VINORELBINE [Suspect]
     Active Substance: VINORELBINE\VINORELBINE TARTRATE
     Indication: HER-2 POSITIVE BREAST CANCER
     Route: 042
     Dates: start: 20160324

REACTIONS (28)
  - Back pain [Recovered/Resolved]
  - Tachycardia [Recovered/Resolved]
  - Pain in extremity [Unknown]
  - Neck pain [Recovered/Resolved]
  - Nausea [Recovering/Resolving]
  - Chest pain [Recovered/Resolved]
  - Musculoskeletal discomfort [Recovered/Resolved]
  - Anxiety [Recovered/Resolved]
  - Epistaxis [Not Recovered/Not Resolved]
  - Musculoskeletal pain [Unknown]
  - Decreased appetite [Not Recovered/Not Resolved]
  - Gingivitis [Recovered/Resolved]
  - Arthralgia [Recovered/Resolved]
  - Epistaxis [Not Recovered/Not Resolved]
  - Spinal pain [Recovered/Resolved]
  - Neuropathy peripheral [Recovered/Resolved]
  - Tachycardia [Recovered/Resolved]
  - Retching [Recovering/Resolving]
  - Palpitations [Recovered/Resolved]
  - Axillary pain [Recovered/Resolved]
  - Headache [Recovered/Resolved]
  - Musculoskeletal pain [Recovered/Resolved]
  - Blood calcium decreased [Recovered/Resolved]
  - Back pain [Recovered/Resolved]
  - Pain in extremity [Recovered/Resolved]
  - Headache [Not Recovered/Not Resolved]
  - Cough [Recovered/Resolved]
  - Pain in extremity [Recovered/Resolved]

NARRATIVE: CASE EVENT DATE: 20150731
